FAERS Safety Report 8803946 (Version 2)
Quarter: 2012Q4

REPORT INFORMATION
  Report Type: 
  Country: GT (occurrence: GT)
  Receive Date: 20120924
  Receipt Date: 20121008
  Transmission Date: 20130627
  Serious: Yes (Death, Hospitalization, Other)
  Sender: FDA-Public Use
  Company Number: PHHY2012GT081383

PATIENT
  Age: 75 Year
  Sex: Male

DRUGS (4)
  1. ONBREZ [Suspect]
     Indication: CHRONIC OBSTRUCTIVE PULMONARY DISEASE
     Dosage: 150 ug, QD
  2. FORADIL [Suspect]
     Dosage: 12 ug, BID
  3. BUDESONIDE [Suspect]
  4. PANTOPRAZOLE [Suspect]

REACTIONS (6)
  - Pneumonia [Fatal]
  - Renal failure acute [Not Recovered/Not Resolved]
  - Lower gastrointestinal haemorrhage [Recovered/Resolved]
  - Anaemia [Unknown]
  - Hypotension [Unknown]
  - Hyperglycaemia [Recovering/Resolving]
